FAERS Safety Report 24070392 (Version 1)
Quarter: 2024Q3

REPORT INFORMATION
  Report Type: Spontaneous
  Country: US (occurrence: None)
  Receive Date: 20240709
  Receipt Date: 20240709
  Transmission Date: 20241017
  Serious: Yes (Other)
  Sender: Public
  Company Number: None

PATIENT
  Age: 62 Year
  Sex: Female
  Weight: 84.15 kg

DRUGS (9)
  1. DULOXETINE HYDROCHLORIDE [Suspect]
     Active Substance: DULOXETINE HYDROCHLORIDE
     Indication: Pain in extremity
     Dosage: OTHER QUANTITY : 60 CAPSULE(S);?
     Route: 048
     Dates: start: 20240118, end: 20240122
  2. pacemaker [Concomitant]
  3. DULOXETINE [Concomitant]
     Active Substance: DULOXETINE
  4. METOPROLOL [Concomitant]
     Active Substance: METOPROLOL
  5. PREGABALIN [Concomitant]
     Active Substance: PREGABALIN
  6. ACYCLOVIR [Concomitant]
     Active Substance: ACYCLOVIR
  7. METHOCARBAMOL [Concomitant]
     Active Substance: METHOCARBAMOL
  8. VITAMINS [Concomitant]
     Active Substance: VITAMINS
  9. TYLENOL [Concomitant]
     Active Substance: ACETAMINOPHEN

REACTIONS (2)
  - Pain in extremity [None]
  - Feeling hot [None]

NARRATIVE: CASE EVENT DATE: 20240118
